FAERS Safety Report 16119472 (Version 4)
Quarter: 2019Q2

REPORT INFORMATION
  Report Type: Spontaneous
  Country: NZ (occurrence: NZ)
  Receive Date: 20190326
  Receipt Date: 20190531
  Transmission Date: 20190711
  Serious: Yes (Other)
  Sender: FDA-Public Use
  Company Number: NZ-ABBVIE-19K-118-2711671-00

PATIENT
  Sex: Male

DRUGS (2)
  1. MAVIRET [Suspect]
     Active Substance: GLECAPREVIR\PIBRENTASVIR
     Indication: CHRONIC HEPATITIS C
     Route: 048
  2. TACROLIMUS. [Suspect]
     Active Substance: TACROLIMUS
     Indication: PRODUCT USED FOR UNKNOWN INDICATION
     Route: 065

REACTIONS (9)
  - Liver transplant [Unknown]
  - Hepatotoxicity [Unknown]
  - Jaundice [Unknown]
  - Bilirubin conjugated increased [Unknown]
  - Immunosuppression [Unknown]
  - Blood bilirubin unconjugated decreased [Unknown]
  - Alanine aminotransferase decreased [Recovered/Resolved]
  - Fibrosis [Unknown]
  - Renal impairment [Unknown]

NARRATIVE: CASE EVENT DATE: 2019
